FAERS Safety Report 4421784-2 (Version None)
Quarter: 2004Q3

REPORT INFORMATION
  Report Type: 
  Country: None (occurrence: None)
  Receive Date: 20040806
  Receipt Date: 20040720
  Transmission Date: 20050211
  Serious: Yes (Other)
  Sender: FDA-Public Use
  Company Number: USA040771693

PATIENT
  Age: 57 Year
  Sex: Female

DRUGS (5)
  1. STRATTERA [Suspect]
     Dosage: 40 MG/1 DAY
     Dates: start: 20040601
  2. ADVICOR [Concomitant]
  3. ELAVIL [Concomitant]
  4. ATIVAN [Concomitant]
  5. ESTRATEST [Concomitant]

REACTIONS (2)
  - CONDITION AGGRAVATED [None]
  - HEPATITIS C [None]
